FAERS Safety Report 17491453 (Version 1)
Quarter: 2020Q1

REPORT INFORMATION
  Report Type: Spontaneous
  Country: US (occurrence: US)
  Receive Date: 20200303
  Receipt Date: 20200303
  Transmission Date: 20200409
  Serious: No
  Sender: FDA-Public Use
  Company Number: US-SA-2020SA055494

PATIENT
  Age: 62 Year
  Sex: Male

DRUGS (3)
  1. DUPIXENT [Suspect]
     Active Substance: DUPILUMAB
     Indication: DERMATITIS ATOPIC
     Dosage: 300 MG, QOW
     Route: 058
     Dates: start: 20200201
  2. HYDROXYZINE HCL [Concomitant]
     Active Substance: HYDROXYZINE HYDROCHLORIDE
  3. CLOBETASOL [Concomitant]
     Active Substance: CLOBETASOL

REACTIONS (8)
  - Sleep disorder [Unknown]
  - Dry skin [Unknown]
  - Skin fissures [Unknown]
  - Eczema [Unknown]
  - Skin exfoliation [Unknown]
  - Pruritus [Unknown]
  - Skin haemorrhage [Unknown]
  - Skin weeping [Unknown]
